FAERS Safety Report 8185600 (Version 2)
Quarter: 2012Q4

REPORT INFORMATION
  Report Type: 
  Country: US (occurrence: US)
  Receive Date: 20111018
  Receipt Date: 20120919
  Transmission Date: 20130627
  Serious: No
  Sender: FDA-Public Use
  Company Number: US-ASTRAZENECA-2010SE48743

PATIENT
  Age: 61 Year
  Sex: Female

DRUGS (1)
  1. SYMBICORT [Suspect]
     Dosage: UNKNOWN
     Route: 055

REACTIONS (6)
  - Sinus disorder [Unknown]
  - Fatigue [Unknown]
  - Pain [Unknown]
  - Arthritis [Unknown]
  - Insomnia [Unknown]
  - Aphonia [Unknown]
